FAERS Safety Report 25351969 (Version 1)
Quarter: 2025Q2

REPORT INFORMATION
  Report Type: Spontaneous
  Country: US (occurrence: None)
  Receive Date: 20250522
  Receipt Date: 20250522
  Transmission Date: 20250716
  Serious: Yes (Life-Threatening, Hospitalization)
  Sender: FDA-CTU
  Company Number: None

PATIENT
  Age: 76 Year
  Sex: Female
  Weight: 52.65 kg

DRUGS (22)
  1. BENLYSTA [Suspect]
     Active Substance: BELIMUMAB
     Indication: Systemic lupus erythematosus
     Route: 058
     Dates: start: 20250403, end: 20250424
  2. acetaminophen PRN [Concomitant]
  3. ASPIRIN [Concomitant]
     Active Substance: ASPIRIN
  4. atorvastatin 20mg daily [Concomitant]
  5. vitamin d3 1000IU daily [Concomitant]
  6. ferrous sulfate 325mg QOD [Concomitant]
  7. albuterol prn [Concomitant]
  8. qvar 80mcg inhaler [Concomitant]
  9. biotin 10mg daily [Concomitant]
  10. elderberry supplement once daily [Concomitant]
  11. wixela 250/50mcg bid [Concomitant]
  12. GABAPENTIN [Concomitant]
     Active Substance: GABAPENTIN
  13. FUROSEMIDE [Concomitant]
     Active Substance: FUROSEMIDE
  14. metoprolol succinate 50mg daily [Concomitant]
  15. VITAMINS [Concomitant]
     Active Substance: VITAMINS
  16. omega-3 supplement [Concomitant]
  17. FIBERCON [Concomitant]
     Active Substance: CALCIUM POLYCARBOPHIL
  18. SPIRONOLACTONE [Concomitant]
     Active Substance: SPIRONOLACTONE
  19. valsartan 40mg daily [Concomitant]
  20. zinc acetate supplement [Concomitant]
  21. calcium and magnesium supllement [Concomitant]
  22. BETAMETHASONE DIPROPIONATE [Concomitant]
     Active Substance: BETAMETHASONE DIPROPIONATE

REACTIONS (10)
  - Somnolence [None]
  - Tachycardia [None]
  - Tachypnoea [None]
  - Sepsis [None]
  - Bacteraemia [None]
  - Meningitis [None]
  - Mental status changes [None]
  - Memory impairment [None]
  - Brain abscess [None]
  - CNS ventriculitis [None]

NARRATIVE: CASE EVENT DATE: 20250428
